FAERS Safety Report 25133659 (Version 1)
Quarter: 2025Q1

REPORT INFORMATION
  Report Type: Spontaneous
  Country: US (occurrence: None)
  Receive Date: 20250328
  Receipt Date: 20250328
  Transmission Date: 20250409
  Serious: Yes (Other)
  Sender: AXSOME THERAPEUTICS, INC.
  Company Number: US-ARIS GLOBAL-AXS202404-000428

PATIENT
  Age: 40 Year
  Sex: Female

DRUGS (5)
  1. SUNOSI [Suspect]
     Active Substance: SOLRIAMFETOL
     Indication: Product used for unknown indication
     Route: 065
  2. SUNOSI [Suspect]
     Active Substance: SOLRIAMFETOL
     Route: 065
     Dates: start: 20240321, end: 202403
  3. XYREM [Suspect]
     Active Substance: SODIUM OXYBATE
     Indication: Narcolepsy
     Route: 065
  4. XYREM [Suspect]
     Active Substance: SODIUM OXYBATE
     Indication: Cataplexy
     Route: 065
  5. XYREM [Suspect]
     Active Substance: SODIUM OXYBATE
     Indication: Somnolence
     Route: 065

REACTIONS (13)
  - Psychotic disorder [Unknown]
  - Hunger [Unknown]
  - Feeling abnormal [Unknown]
  - Fatigue [Unknown]
  - Agoraphobia [Unknown]
  - Thinking abnormal [Unknown]
  - Somnolence [Unknown]
  - Dyspnoea [Unknown]
  - Anxiety [Unknown]
  - Panic attack [Unknown]
  - Product dose omission issue [Unknown]
  - Insurance issue [Unknown]
  - Therapy interrupted [Unknown]

NARRATIVE: CASE EVENT DATE: 20240301
